FAERS Safety Report 7378299-1 (Version None)
Quarter: 2011Q1

REPORT INFORMATION
  Report Type: 
  Country: None (occurrence: None)
  Receive Date: 20110328
  Receipt Date: 20110315
  Transmission Date: 20110831
  Serious: Yes (Death)
  Sender: FDA-Public Use
  Company Number: GB-JNJFOC-20090803564

PATIENT
  Age: 60 Year
  Sex: Female

DRUGS (7)
  1. BENDROFLUAZIDE [Concomitant]
  2. FOLIC ACID [Concomitant]
  3. LANSOPRAZOLE [Concomitant]
  4. REMICADE [Suspect]
     Indication: RHEUMATOID ARTHRITIS
     Route: 042
  5. MEBEVERINE [Concomitant]
  6. CELECOXIB [Concomitant]
  7. METHOTREXATE [Concomitant]

REACTIONS (2)
  - LUNG ADENOCARCINOMA [None]
  - BRONCHOPNEUMONIA [None]
